FAERS Safety Report 5263878-8 (Version None)
Quarter: 2007Q1

REPORT INFORMATION
  Report Type: 
  Country: None (occurrence: None)
  Receive Date: 20061213
  Receipt Date: 20041130
  Transmission Date: 20070707
  Serious: Yes (Other)
  Sender: FDA-Public Use
  Company Number: 2004UW20398

PATIENT
  Age: 55 Year
  Sex: Female
  Weight: 64.8644 kg

DRUGS (4)
  1. IRESSA [Suspect]
     Indication: LUNG NEOPLASM MALIGNANT
     Dosage: 250 MG DAIILY PO
     Route: 048
     Dates: start: 20040712
  2. DURAGESIC-100 [Concomitant]
  3. VICODIN [Concomitant]
  4. ATARAX [Concomitant]

REACTIONS (3)
  - NAIL DISORDER [None]
  - PAIN IN EXTREMITY [None]
  - SKIN LESION [None]
